FAERS Safety Report 11724419 (Version 1)
Quarter: 2015Q4

REPORT INFORMATION
  Report Type: Spontaneous
  Country: TR (occurrence: TR)
  Receive Date: 20151111
  Receipt Date: 20151111
  Transmission Date: 20160304
  Serious: Yes (Hospitalization)
  Sender: FDA-Public Use
  Company Number: PHHY2015TR145184

PATIENT
  Age: 13 Year
  Sex: Male

DRUGS (4)
  1. RIBAVIRIN. [Suspect]
     Active Substance: RIBAVIRIN
     Dosage: 15 MG/KG, EVERY 6 HOURS FOR 4 DAYS
     Route: 042
  2. RIBAVIRIN. [Suspect]
     Active Substance: RIBAVIRIN
     Dosage: 7.5 MG/KG, EVERY 8 HOURS FOR 6 DAYS
     Route: 042
  3. RIBAVIRIN. [Suspect]
     Active Substance: RIBAVIRIN
     Route: 048
  4. RIBAVIRIN. [Suspect]
     Active Substance: RIBAVIRIN
     Indication: CONGO-CRIMEAN HAEMORRHAGIC FEVER
     Dosage: 30 MG/KG, INITIAL LOADING DOSE
     Route: 042

REACTIONS (1)
  - Bradycardia [Unknown]
